FAERS Safety Report 6920871-4 (Version None)
Quarter: 2010Q3

REPORT INFORMATION
  Report Type: 
  Country: None (occurrence: None)
  Receive Date: 20100812
  Receipt Date: 20100809
  Transmission Date: 20110219
  Serious: Yes (Other)
  Sender: FDA-Public Use
  Company Number: JP-SANOFI-AVENTIS-2010SA047343

PATIENT
  Age: 86 Year
  Sex: Female

DRUGS (5)
  1. LASIX [Suspect]
     Dosage: DIVIDED DOSE FREQUENCY UNKNOWN
     Dates: start: 20100613, end: 20100623
  2. LASIX [Suspect]
     Indication: CARDIAC FAILURE
     Dosage: DOSAGE UNKNOWN
     Route: 042
     Dates: start: 20100624, end: 20100710
  3. TAKEPRON [Concomitant]
     Dosage: DIVIDED DOSE FREQUENCY UNKNOWN
     Route: 065
  4. TICLOPIDINE HCL [Concomitant]
     Dosage: DIVIDED DOSE FREQUENCY UNKNOWN
     Route: 048
  5. LOXONIN [Concomitant]
     Dosage: DOSAGE UNKNOWN
     Route: 065

REACTIONS (2)
  - DYSPNOEA [None]
  - INTERSTITIAL LUNG DISEASE [None]
